FAERS Safety Report 17241672 (Version 1)
Quarter: 2020Q1

REPORT INFORMATION
  Report Type: Spontaneous
  Country: CN (occurrence: CN)
  Receive Date: 20200107
  Receipt Date: 20200107
  Transmission Date: 20200409
  Serious: Yes (Hospitalization, Other)
  Sender: FDA-Public Use
  Company Number: CN-PFIZER INC-2020001861

PATIENT
  Age: 64 Year
  Sex: Female
  Weight: 55 kg

DRUGS (1)
  1. LIPITOR [Suspect]
     Active Substance: ATORVASTATIN CALCIUM
     Indication: PLAQUE SHIFT
     Dosage: 20.000 MG, 1X/DAY
     Route: 048
     Dates: start: 20191212, end: 20191218

REACTIONS (7)
  - Dizziness [Unknown]
  - Bradyphrenia [Unknown]
  - Muscular weakness [Unknown]
  - Language disorder [Unknown]
  - Hepatic function abnormal [Recovering/Resolving]
  - Gait disturbance [Unknown]
  - Apathy [Unknown]

NARRATIVE: CASE EVENT DATE: 20191218
